FAERS Safety Report 4686874-8 (Version None)
Quarter: 2005Q2

REPORT INFORMATION
  Report Type: 
  Country: None (occurrence: None)
  Receive Date: 20050608
  Receipt Date: 20050524
  Transmission Date: 20051028
  Serious: Yes (Other)
  Sender: FDA-Public Use
  Company Number: 2005079849

PATIENT
  Sex: Female

DRUGS (4)
  1. DETROL LA [Suspect]
     Indication: HYPERTONIC BLADDER
     Dosage: 4 MG, AS NECESSARY, ORAL
     Route: 048
  2. CELEBREX [Suspect]
     Indication: OSTEOARTHRITIS
     Dosage: 200 MG (200 MG, 1 IN 1 D), ORAL
     Route: 048
  3. ATENOLOL [Concomitant]
  4. ASPIRIN [Concomitant]

REACTIONS (6)
  - CONDITION AGGRAVATED [None]
  - CONTUSION [None]
  - DYSPEPSIA [None]
  - FALL [None]
  - OSTEOARTHRITIS [None]
  - WRIST FRACTURE [None]
